FAERS Safety Report 13814077 (Version 1)
Quarter: 2017Q3

REPORT INFORMATION
  Report Type: Spontaneous
  Country: US (occurrence: US)
  Receive Date: 20170728
  Receipt Date: 20170728
  Transmission Date: 20171127
  Serious: Yes (Other)
  Sender: FDA-Public Use
  Company Number: None

PATIENT
  Age: 49 Year
  Sex: Female
  Weight: 74.1 kg

DRUGS (1)
  1. SUTENT [Suspect]
     Active Substance: SUNITINIB MALATE
     Indication: HEPATIC CANCER
     Dosage: 50MG QD-4WKS ON + 2WKS OFF BY MOUTH
     Route: 048
     Dates: start: 20170508

REACTIONS (5)
  - Diarrhoea [None]
  - Polymenorrhoea [None]
  - Headache [None]
  - Asthenia [None]
  - Bone pain [None]

NARRATIVE: CASE EVENT DATE: 20170519
